FAERS Safety Report 6208192-9 (Version None)
Quarter: 2009Q2

REPORT INFORMATION
  Report Type: 
  Country: None (occurrence: None)
  Receive Date: 20090529
  Receipt Date: 20090520
  Transmission Date: 20091009
  Serious: Yes (Hospitalization, Other)
  Sender: FDA-Public Use
  Company Number: PHHY2008CA02926

PATIENT
  Sex: Female

DRUGS (13)
  1. CLOZARIL [Suspect]
     Indication: SCHIZOPHRENIA
     Dosage: 200 MG, BID
     Route: 048
     Dates: start: 20071029
  2. CLOZARIL [Suspect]
     Indication: AGITATION
     Route: 048
  3. CIPROFLOXACIN [Concomitant]
  4. EPIVAL [Concomitant]
     Dosage: 1000 MG, BID
  5. ZOLOFT [Concomitant]
     Dosage: 300 MG, QD
  6. HALDOL [Concomitant]
     Dosage: 5 MG, PRN
     Route: 048
  7. ATIVAN [Concomitant]
     Dosage: 2 MG, PRN
  8. NORVASC [Concomitant]
  9. ATACAND [Concomitant]
     Dosage: 16 MG, QD
  10. SYNTHROID [Concomitant]
     Dosage: 0.5 MG, QD
  11. PREMARIN [Concomitant]
     Dosage: 0.625 MG, QD
  12. PROVERA [Concomitant]
  13. BECONASE [Concomitant]

REACTIONS (11)
  - CONFUSIONAL STATE [None]
  - DYSTONIA [None]
  - HYPOKINESIA [None]
  - LISTLESS [None]
  - MUSCLE RIGIDITY [None]
  - MUSCLE SPASMS [None]
  - NEUTROPHIL COUNT INCREASED [None]
  - POSTURE ABNORMAL [None]
  - PYREXIA [None]
  - TREMOR [None]
  - WHITE BLOOD CELL COUNT INCREASED [None]
